FAERS Safety Report 20544708 (Version 1)
Quarter: 2022Q1

REPORT INFORMATION
  Report Type: Spontaneous
  Country: US (occurrence: US)
  Receive Date: 20220303
  Receipt Date: 20220303
  Transmission Date: 20220423
  Serious: Yes (Hospitalization)
  Sender: FDA-Public Use
  Company Number: US-AMGEN-USASP2022035953

PATIENT

DRUGS (1)
  1. CARFILZOMIB [Suspect]
     Active Substance: CARFILZOMIB
     Indication: Plasma cell myeloma
     Dosage: UNK
     Route: 065

REACTIONS (7)
  - Vision blurred [Unknown]
  - Visual acuity reduced [Unknown]
  - Dry eye [Unknown]
  - Eye pain [Unknown]
  - Photophobia [Unknown]
  - Keratopathy [Unknown]
  - Keratitis [Unknown]
